FAERS Safety Report 14154765 (Version 2)
Quarter: 2017Q4

REPORT INFORMATION
  Report Type: Report from Study
  Country: US (occurrence: US)
  Receive Date: 20171102
  Receipt Date: 20171121
  Transmission Date: 20180321
  Serious: Yes (Hospitalization)
  Sender: FDA-Public Use
  Company Number: US-SEATTLE GENETICS-2017SGN02641

PATIENT
  Age: 33 Year
  Sex: Female

DRUGS (25)
  1. LIDOCAINE. [Concomitant]
     Active Substance: LIDOCAINE
     Indication: PAIN
     Dosage: UNK
     Dates: start: 20170914
  2. HYDROMORPHONE [Concomitant]
     Active Substance: HYDROMORPHONE
     Indication: PAIN
     Dosage: UNK
     Dates: start: 20171002, end: 20171002
  3. SODIUM CHLORIDE. [Concomitant]
     Active Substance: SODIUM CHLORIDE
     Dosage: UNK
     Dates: start: 20170920, end: 20170921
  4. LIDOCAINE AND PRILOCAINE CREAM [Concomitant]
     Active Substance: LIDOCAINE\PRILOCAINE
     Indication: PAIN
     Dosage: UNK
     Route: 061
     Dates: start: 20171004, end: 20171004
  5. HYDROMORPHONE [Concomitant]
     Active Substance: HYDROMORPHONE
     Dosage: UNK
     Dates: start: 20170928
  6. SODIUM CHLORIDE. [Concomitant]
     Active Substance: SODIUM CHLORIDE
     Indication: FLUID REPLACEMENT
     Dosage: UNK
     Dates: start: 20171002, end: 20171002
  7. LORAZEPAM. [Concomitant]
     Active Substance: LORAZEPAM
     Indication: ANXIETY
     Dosage: UNK
     Dates: start: 20170911
  8. CEPHALEXIN                         /00145501/ [Concomitant]
     Active Substance: CEPHALEXIN
     Indication: INFECTION
     Dosage: UNK
     Dates: start: 20170919
  9. FILGRASTIM [Concomitant]
     Active Substance: FILGRASTIM
     Indication: NEUTROPENIA
  10. HYDROMORPHONE [Concomitant]
     Active Substance: HYDROMORPHONE
     Dosage: UNK
     Dates: start: 20170927, end: 20170927
  11. METRONIDAZOLE. [Concomitant]
     Active Substance: METRONIDAZOLE
     Indication: INFECTION
     Dosage: UNK
     Dates: start: 20170924, end: 20170926
  12. METRONIDAZOLE. [Concomitant]
     Active Substance: METRONIDAZOLE
     Dosage: UNK
     Dates: start: 20170919
  13. FIORICET [Concomitant]
     Active Substance: ACETAMINOPHEN\BUTALBITAL\CAFFEINE
     Indication: PAIN
     Dosage: UNK
     Dates: start: 20170921, end: 20170921
  14. PROMETHAZINE [Concomitant]
     Active Substance: PROMETHAZINE\PROMETHAZINE HYDROCHLORIDE
     Indication: INFLAMMATION
     Dosage: UNK
     Dates: start: 20171002, end: 20171002
  15. DACARBAZINE. [Suspect]
     Active Substance: DACARBAZINE
     Indication: HODGKIN^S DISEASE NODULAR SCLEROSIS
     Dosage: 375 MG/M2, QCYCLE
     Route: 042
     Dates: start: 20170914, end: 20171005
  16. ONDANSETRON [Concomitant]
     Active Substance: ONDANSETRON
     Indication: NAUSEA
     Dosage: UNK
     Dates: start: 20170914
  17. ONDANSETRON [Concomitant]
     Active Substance: ONDANSETRON
     Indication: VOMITING
  18. FILGRASTIM [Concomitant]
     Active Substance: FILGRASTIM
     Indication: PYREXIA
     Dosage: UNK
     Dates: start: 20170919
  19. BRENTUXIMAB VEDOTIN [Suspect]
     Active Substance: BRENTUXIMAB VEDOTIN
     Indication: HODGKIN^S DISEASE NODULAR SCLEROSIS
     Dosage: 1.2 MG/KG, Q4WEEKS
     Route: 042
     Dates: start: 20170914, end: 20171005
  20. DOXORUBICIN [Suspect]
     Active Substance: DOXORUBICIN
     Indication: HODGKIN^S DISEASE NODULAR SCLEROSIS
     Dosage: 25 MG/M2, QCYCLE
     Route: 042
     Dates: start: 20170914, end: 20171005
  21. HYDROMORPHONE [Concomitant]
     Active Substance: HYDROMORPHONE
     Dosage: UNK
     Dates: start: 20170919
  22. VANCOMYCIN [Concomitant]
     Active Substance: VANCOMYCIN
     Indication: INFECTION
     Dosage: UNK
     Dates: start: 20170928, end: 20171004
  23. VINBLASTINE [Suspect]
     Active Substance: VINBLASTINE
     Indication: HODGKIN^S DISEASE NODULAR SCLEROSIS
     Dosage: 6 MG/M2, QCYCLE
     Route: 042
     Dates: start: 20170914, end: 20171005
  24. ACETAZOLAMIDE. [Concomitant]
     Active Substance: ACETAZOLAMIDE
     Indication: HYPERTENSION
     Dosage: UNK
     Dates: start: 20170823
  25. PROCHLORPERAZINE. [Concomitant]
     Active Substance: PROCHLORPERAZINE
     Indication: NAUSEA
     Dosage: UNK
     Dates: start: 20170911

REACTIONS (1)
  - Abdominal pain [Not Recovered/Not Resolved]

NARRATIVE: CASE EVENT DATE: 20171010
